FAERS Safety Report 9454710 (Version 4)
Quarter: 2013Q3

REPORT INFORMATION
  Report Type: Spontaneous
  Country: JP (occurrence: JP)
  Receive Date: 20130812
  Receipt Date: 20130917
  Transmission Date: 20140515
  Serious: Yes (Life-Threatening, Hospitalization, Other)
  Sender: FDA-Public Use
  Company Number: JP-B.I. PHARMACEUTICALS,INC./RIDGEFIELD-2013-BI-24380GD

PATIENT
  Age: 81 Year
  Sex: Male

DRUGS (4)
  1. PRADAXA [Suspect]
     Indication: ATRIAL FIBRILLATION
     Route: 048
     Dates: start: 20121221, end: 20130222
  2. WARFARIN POTASSIUM [Suspect]
     Indication: ATRIAL FIBRILLATION
     Dates: start: 20130223
  3. TRIMETHOPRIM SULFAMETHOXAZOLE [Suspect]
     Indication: PNEUMOCYSTIS JIROVECII PNEUMONIA
  4. DEXAMETHASONE [Concomitant]
     Indication: BRAIN OEDEMA
     Route: 048

REACTIONS (9)
  - Pneumocystis jirovecii pneumonia [Unknown]
  - Brain oedema [Unknown]
  - Cerebral infarction [Unknown]
  - Bile duct obstruction [Unknown]
  - Cholecystitis acute [Unknown]
  - Haemorrhage [Unknown]
  - Anaemia [Unknown]
  - Gallbladder necrosis [Unknown]
  - Drug effect incomplete [Unknown]
